FAERS Safety Report 8408362-5 (Version None)
Quarter: 2012Q2

REPORT INFORMATION
  Report Type: 
  Country: None (occurrence: None)
  Receive Date: 20120604
  Receipt Date: 20120530
  Transmission Date: 20120825
  Serious: Yes (Hospitalization)
  Sender: FDA-Public Use
  Company Number: US-GILEAD-2012-0055195

PATIENT
  Sex: Female

DRUGS (12)
  1. LETAIRIS [Suspect]
     Indication: PULMONARY HYPERTENSION
     Dosage: 5 MG, UNK
     Route: 048
     Dates: start: 20120510
  2. OMEPRAZOLE [Concomitant]
  3. SPIRONOLACTONE [Concomitant]
  4. ZOCOR [Concomitant]
  5. COUMADIN [Concomitant]
  6. DIGOXIN [Concomitant]
  7. FISH OIL [Concomitant]
  8. LASIX [Concomitant]
  9. TRIAMCINOLONE ACETONIDE [Concomitant]
  10. ADCIRCA [Concomitant]
  11. EPOPROSTENOL [Concomitant]
  12. PRO-STAT [Concomitant]

REACTIONS (7)
  - RIGHT VENTRICULAR FAILURE [None]
  - FLUID RETENTION [None]
  - DYSPNOEA [None]
  - OEDEMA [None]
  - WEIGHT INCREASED [None]
  - OXYGEN SATURATION DECREASED [None]
  - FLUID OVERLOAD [None]
